FAERS Safety Report 6429318-8 (Version None)
Quarter: 2009Q4

REPORT INFORMATION
  Report Type: 
  Country: None (occurrence: None)
  Receive Date: 20091030
  Receipt Date: 20091021
  Transmission Date: 20100525
  Serious: Yes (Hospitalization)
  Sender: FDA-Public Use
  Company Number: 2009-04392

PATIENT
  Age: 66 Year
  Sex: Female
  Weight: 78 kg

DRUGS (6)
  1. VELCADE [Suspect]
     Indication: ACUTE MYELOID LEUKAEMIA
     Dosage: 1.3 MG/M2, IV BOLUS
     Route: 040
     Dates: start: 20090910, end: 20090920
  2. DAUNORUBICIN HCL [Suspect]
     Indication: ACUTE MYELOID LEUKAEMIA
     Dosage: 60 MG/M2, INTRAVENOUS
     Route: 042
     Dates: start: 20090910, end: 20090912
  3. CYTARABINE [Suspect]
     Indication: ACUTE MYELOID LEUKAEMIA
     Dosage: 100 MG/M2, INTRAVENOUS
     Route: 042
     Dates: start: 20090910, end: 20090916
  4. VALTREX [Concomitant]
  5. MOXIFLOXACIN HCL [Concomitant]
  6. TRIAZOLE DERIVATIVES [Concomitant]

REACTIONS (30)
  - ABDOMINAL PAIN [None]
  - ACUTE RESPIRATORY DISTRESS SYNDROME [None]
  - ALANINE AMINOTRANSFERASE INCREASED [None]
  - ASPARTATE AMINOTRANSFERASE INCREASED [None]
  - ATELECTASIS [None]
  - BACK PAIN [None]
  - BLOOD CREATININE INCREASED [None]
  - BRONCHOALVEOLAR LAVAGE ABNORMAL [None]
  - CARDIOMEGALY [None]
  - CELLULITIS [None]
  - CONFUSIONAL STATE [None]
  - DIARRHOEA [None]
  - FEBRILE NEUTROPENIA [None]
  - HAEMORRHOIDS [None]
  - HYPERTENSION [None]
  - HYPOTENSION [None]
  - ILEUS [None]
  - MICROCOCCUS INFECTION [None]
  - OEDEMA PERIPHERAL [None]
  - ORAL CANDIDIASIS [None]
  - OROPHARYNGEAL PAIN [None]
  - PAIN IN JAW [None]
  - PLEURAL EFFUSION [None]
  - PNEUMONIA [None]
  - PNEUMONITIS [None]
  - PULMONARY CONGESTION [None]
  - PULMONARY OEDEMA [None]
  - SINUS CONGESTION [None]
  - SINUS TACHYCARDIA [None]
  - STOMATOCOCCAL INFECTION [None]
